FAERS Safety Report 13106230 (Version 1)
Quarter: 2017Q1

REPORT INFORMATION
  Report Type: Spontaneous
  Country: IT (occurrence: IT)
  Receive Date: 20170111
  Receipt Date: 20170111
  Transmission Date: 20170428
  Serious: Yes (Other)
  Sender: FDA-Public Use
  Company Number: IT-ASTRAZENECA-2016SF29593

PATIENT
  Age: 23740 Day
  Sex: Male
  Weight: 80 kg

DRUGS (7)
  1. AMLODIPINE [Concomitant]
     Active Substance: AMLODIPINE BESYLATE
     Dates: start: 20161129, end: 20161201
  2. AMLODIPINE [Concomitant]
     Active Substance: AMLODIPINE BESYLATE
  3. TICLOPIDIN [Suspect]
     Active Substance: TICLOPIDINE
     Route: 065
     Dates: start: 20161129
  4. ASA [Suspect]
     Active Substance: ASPIRIN
     Dosage: 250 MG
     Route: 065
     Dates: start: 20161130, end: 20161201
  5. HEPARIN [Suspect]
     Active Substance: HEPARIN SODIUM
     Dosage: 4000 UI PLUS 5000 UI
     Route: 065
     Dates: start: 20161130
  6. TICAGRELOR [Suspect]
     Active Substance: TICAGRELOR
     Indication: ACUTE MYOCARDIAL INFARCTION
     Dosage: 180 MG PLUS 90 MG
     Route: 048
     Dates: start: 20161130, end: 20161201
  7. ASA [Suspect]
     Active Substance: ASPIRIN
     Route: 065

REACTIONS (5)
  - Dysphagia [Unknown]
  - Aphasia [Unknown]
  - Cerebral haemorrhage [Not Recovered/Not Resolved]
  - Muscular weakness [Unknown]
  - Facial paresis [Unknown]

NARRATIVE: CASE EVENT DATE: 20161201
